FAERS Safety Report 13844487 (Version 1)
Quarter: 2017Q3

REPORT INFORMATION
  Report Type: Spontaneous
  Country: MY (occurrence: MY)
  Receive Date: 20170808
  Receipt Date: 20170808
  Transmission Date: 20171127
  Serious: Yes (Other)
  Sender: FDA-Public Use
  Company Number: MY-GE HEALTHCARE LIFE SCIENCES-2017CSU002376

PATIENT

DRUGS (1)
  1. OMNISCAN [Suspect]
     Active Substance: GADODIAMIDE
     Indication: MASS
     Dosage: UNK UNK, SINGLE
     Route: 065
     Dates: start: 2012, end: 2012

REACTIONS (2)
  - Nephrogenic systemic fibrosis [Not Recovered/Not Resolved]
  - Off label use [Recovered/Resolved]

NARRATIVE: CASE EVENT DATE: 2012
